FAERS Safety Report 13799082 (Version 2)
Quarter: 2019Q1

REPORT INFORMATION
  Report Type: Spontaneous
  Country: US (occurrence: US)
  Receive Date: 20170727
  Receipt Date: 20190226
  Transmission Date: 20190417
  Serious: No
  Sender: FDA-Public Use
  Company Number: US-JNJFOC-20170510142

PATIENT
  Age: 73 Year
  Sex: Male
  Weight: 86.18 kg

DRUGS (2)
  1. VISINE A [Suspect]
     Active Substance: NAPHAZOLINE HYDROCHLORIDE\PHENIRAMINE MALEATE
     Indication: EYE PRURITUS
     Dosage: 2 DROPS, TWICE DAILY
     Route: 047
     Dates: start: 20170505, end: 20170509
  2. VISINE A [Suspect]
     Active Substance: NAPHAZOLINE HYDROCHLORIDE\PHENIRAMINE MALEATE
     Indication: EYE ALLERGY
     Dosage: 2 DROPS, TWICE DAILY
     Route: 047
     Dates: start: 20170505, end: 20170509

REACTIONS (1)
  - Drug ineffective [Unknown]
